FAERS Safety Report 7098366-X (Version None)
Quarter: 2010Q4

REPORT INFORMATION
  Report Type: 
  Country: None (occurrence: None)
  Receive Date: 20101112
  Receipt Date: 20101106
  Transmission Date: 20110411
  Serious: No
  Sender: FDA-Public Use
  Company Number: US-PFIZER INC-2010141923

PATIENT
  Sex: Male
  Weight: 104.31 kg

DRUGS (10)
  1. VIAGRA [Suspect]
     Indication: ERECTILE DYSFUNCTION
     Dosage: 50 MG, 1X/DAY (AS NEEDED)
     Route: 048
     Dates: start: 20101105
  2. DILTIAZEM [Concomitant]
     Dosage: 240 MG, UNK
  3. ACETYLSALICYLIC ACID [Concomitant]
     Dosage: UNK, DAILY
  4. IRON [Concomitant]
     Dosage: UNK
  5. CENTRUM SILVER [Concomitant]
     Dosage: UNK
  6. VITAMIN D [Concomitant]
     Dosage: UNK
  7. ZOCOR [Concomitant]
     Indication: BLOOD CHOLESTEROL INCREASED
     Dosage: UNK
  8. GLIMEPIRIDE [Concomitant]
     Indication: DIABETES MELLITUS
     Dosage: 1 MG, UNK
  9. GLUCOPHAGE [Concomitant]
     Indication: DIABETES MELLITUS
     Dosage: 1000 MG, UNK
  10. MICARDIS [Concomitant]
     Dosage: 40 MG, UNK

REACTIONS (1)
  - PENIS DISORDER [None]
